FAERS Safety Report 7514915-9 (Version None)
Quarter: 2011Q2

REPORT INFORMATION
  Report Type: 
  Country: None (occurrence: None)
  Receive Date: 20110601
  Receipt Date: 20110518
  Transmission Date: 20111010
  Serious: Yes (Hospitalization)
  Sender: FDA-Public Use
  Company Number: US-VIROPHARMA INCORPORATED-20110518VANCO2022

PATIENT
  Sex: Female

DRUGS (1)
  1. VANCOMYCIN HYDROCHLORIDE [Suspect]
     Indication: INFECTION
     Dosage: UNKNOWN
     Route: 048
     Dates: start: 20110429, end: 20110505

REACTIONS (9)
  - PRODUCT QUALITY ISSUE [None]
  - BLOOD POTASSIUM DECREASED [None]
  - MALAISE [None]
  - JAW DISORDER [None]
  - DIARRHOEA [None]
  - NAUSEA [None]
  - DYSGEUSIA [None]
  - DEHYDRATION [None]
  - ABDOMINAL DISCOMFORT [None]
